FAERS Safety Report 8314680 (Version 4)
Quarter: 2013Q4

REPORT INFORMATION
  Report Type: Report from Study
  Country: TH (occurrence: TH)
  Receive Date: 20111229
  Receipt Date: 20131101
  Transmission Date: 20140711
  Serious: Yes (Death, Hospitalization)
  Sender: FDA-Public Use
  Company Number: TH-ROCHE-1013184

PATIENT
  Age: 62 Year
  Sex: Female
  Weight: 43 kg

DRUGS (12)
  1. RITUXIMAB [Suspect]
     Indication: DIFFUSE LARGE B-CELL LYMPHOMA
     Dosage: DOSE CONCENTRATION: 0.93 MG/ML, VOLUME LAST TAKEN: 551.4 ML, LAST DOSE PRIOR TO SAE: 4 NOV 2011
     Route: 042
     Dates: start: 20111104
  2. CYCLOPHOSPHAMIDE [Suspect]
     Indication: DIFFUSE LARGE B-CELL LYMPHOMA
     Dosage: DATE OF LAST DOSE PRIOR TO SAE: 04/NOV/2011
     Route: 042
     Dates: start: 20111104
  3. DOXORUBICIN [Suspect]
     Indication: DIFFUSE LARGE B-CELL LYMPHOMA
     Dosage: DATE OF LAST DOSE PRIOR TO SAE: 04/NOV/2011
     Route: 042
     Dates: start: 20111104
  4. VINCRISTINE [Suspect]
     Indication: DIFFUSE LARGE B-CELL LYMPHOMA
     Dosage: DATE OF LAST DOSE PRIOR TO SAE: 04/NOV/2011
     Route: 042
     Dates: start: 20111104
  5. PREDNISOLONE [Suspect]
     Indication: DIFFUSE LARGE B-CELL LYMPHOMA
     Dosage: DATE OF LAST DOSE PRIOR TO SAE: 04/NOV/2011
     Route: 048
     Dates: start: 20111104
  6. TAZOCIN [Concomitant]
     Route: 065
     Dates: start: 20111113, end: 20111116
  7. PARACETAMOL [Concomitant]
     Route: 065
     Dates: start: 20111104, end: 20111104
  8. DEXAMETHASONE [Concomitant]
     Route: 065
     Dates: start: 20111104, end: 20111104
  9. PIRITON [Concomitant]
     Route: 065
     Dates: start: 20111104, end: 20111104
  10. ONSIA [Concomitant]
     Route: 065
     Dates: start: 20111104, end: 20111109
  11. SENOKOT [Concomitant]
     Route: 065
     Dates: start: 20111104, end: 20111108
  12. VITAMIN B COMPLEX [Concomitant]
     Route: 065
     Dates: start: 20111104

REACTIONS (1)
  - Febrile neutropenia [Fatal]
